FAERS Safety Report 19814053 (Version 2)
Quarter: 2021Q3

REPORT INFORMATION
  Report Type: Report from Study
  Country: DE (occurrence: DE)
  Receive Date: 20210909
  Receipt Date: 20210913
  Transmission Date: 20211014
  Serious: Yes (Hospitalization)
  Sender: FDA-Public Use
  Company Number: DE-ROCHE-2904490

PATIENT
  Age: 67 Year
  Sex: Male
  Weight: 99.5 kg

DRUGS (20)
  1. TIRAGOLUMAB. [Suspect]
     Active Substance: TIRAGOLUMAB
     Indication: NON-SMALL CELL LUNG CANCER
     Dosage: START DATE OF MOST RECENT DOSE OF STUDY DRUG PRIOR TO SAE: 02/JUN/2021?DAY 1 OF EACH 21?DAY CYCLE
     Route: 042
     Dates: start: 20210331
  2. COTRIM FORTE [Concomitant]
     Active Substance: SULFAMETHOXAZOLE\TRIMETHOPRIM
     Route: 048
     Dates: start: 20210617
  3. DECORTIN [Concomitant]
     Active Substance: PREDNISONE
     Route: 048
     Dates: start: 20210831, end: 20210831
  4. DECORTIN [Concomitant]
     Active Substance: PREDNISONE
     Route: 048
     Dates: start: 20210903, end: 20210905
  5. DECORTIN [Concomitant]
     Active Substance: PREDNISONE
     Route: 048
     Dates: start: 20210901, end: 20210902
  6. DIMETINDEN MALEAT [Concomitant]
     Route: 048
     Dates: start: 20210902
  7. PANTOZOLE [Concomitant]
     Active Substance: PANTOPRAZOLE SODIUM
     Route: 048
     Dates: start: 20210617
  8. DECORTIN [Concomitant]
     Active Substance: PREDNISONE
     Route: 048
     Dates: start: 20210903, end: 20210903
  9. DECORTIN [Concomitant]
     Active Substance: PREDNISONE
     Route: 048
     Dates: start: 20210906
  10. ATEZOLIZUMAB. [Suspect]
     Active Substance: ATEZOLIZUMAB
     Indication: NON-SMALL CELL LUNG CANCER
     Dosage: START DATE OF MOST RECENT DOSE OF STUDY DRUG PRIOR TO SAE: 02/JUN/2021?LAST STUDY DRUG ADMIN PRIOR S
     Route: 041
     Dates: start: 20210331
  11. ALFASON [Concomitant]
     Active Substance: HYDROCORTISONE BUTYRATE
     Indication: PRURITUS
     Route: 065
     Dates: start: 20210602
  12. DECORTIN [Concomitant]
     Active Substance: PREDNISONE
     Indication: DERMATITIS
     Route: 048
     Dates: start: 20210726, end: 20210802
  13. CALCILAC [Concomitant]
     Active Substance: CALCIUM CARBONATE
     Route: 048
     Dates: start: 20210726, end: 20210803
  14. COTRIM FORTE [Concomitant]
     Active Substance: SULFAMETHOXAZOLE\TRIMETHOPRIM
     Route: 048
     Dates: start: 20210726, end: 20210803
  15. DECORTIN [Concomitant]
     Active Substance: PREDNISONE
     Indication: COLITIS
     Route: 048
     Dates: start: 20210803, end: 20210809
  16. DECORTIN H [Concomitant]
     Active Substance: PREDNISOLONE
     Indication: COLITIS
     Dosage: 100
     Route: 048
     Dates: start: 20210617
  17. DECORTIN [Concomitant]
     Active Substance: PREDNISONE
     Dosage: 20 CAPSULE
     Route: 048
     Dates: start: 20210810
  18. DIMETINDEN MALEAT [Concomitant]
     Indication: DERMATITIS
     Route: 048
     Dates: start: 20210901, end: 20210901
  19. OPTIDERM [Concomitant]
     Indication: DERMATITIS
     Route: 061
     Dates: start: 20210901
  20. DECORTIN H [Concomitant]
     Active Substance: PREDNISOLONE
     Dosage: 100
     Route: 048
     Dates: start: 20210906

REACTIONS (2)
  - Pruritus [Unknown]
  - Rash [Unknown]

NARRATIVE: CASE EVENT DATE: 20210831
